FAERS Safety Report 6839775-0 (Version None)
Quarter: 2010Q3

REPORT INFORMATION
  Report Type: 
  Country: None (occurrence: None)
  Receive Date: 20100714
  Receipt Date: 20100707
  Transmission Date: 20110219
  Serious: Yes (Hospitalization)
  Sender: FDA-Public Use
  Company Number: JP-PFIZER INC-2010084276

PATIENT
  Age: 74 Year
  Sex: Male
  Weight: 45.6 kg

DRUGS (5)
  1. SUNITINIB MALATE [Suspect]
     Indication: GASTROINTESTINAL STROMAL TUMOUR
     Dosage: 50 MG, 1X/DAY
     Route: 048
     Dates: start: 20090526, end: 20090611
  2. OLMETEC [Concomitant]
     Dosage: 20 MG, 1X/DAY
     Route: 048
  3. MAINTATE [Concomitant]
     Dosage: 5 MG, 1X/DAY
     Route: 048
  4. ADALAT CC [Concomitant]
     Dosage: 20 MG, 1X/DAY
     Route: 048
  5. ALDACTONE [Concomitant]
     Dosage: 25 MG, 1X/DAY
     Route: 048

REACTIONS (5)
  - CARDIAC DISORDER [None]
  - LIVER DISORDER [None]
  - MELAENA [None]
  - PLATELET COUNT DECREASED [None]
  - RENAL DISORDER [None]
